FAERS Safety Report 8460334-0 (Version None)
Quarter: 2012Q2

REPORT INFORMATION
  Report Type: 
  Country: None (occurrence: None)
  Receive Date: 20120323
  Receipt Date: 20110926
  Transmission Date: 20120825
  Serious: Yes (Hospitalization)
  Sender: FDA-Public Use
  Company Number: 163-21880-11093232

PATIENT
  Sex: Male

DRUGS (3)
  1. REVLIMID [Suspect]
     Indication: MULTIPLE MYELOMA
     Dosage: 25 MG, DAILY X 21 DAYS, PO
     Route: 048
     Dates: start: 20110602
  2. DEXAMETHASONE [Concomitant]
  3. ZOMETA [Concomitant]

REACTIONS (3)
  - SWELLING FACE [None]
  - LIP SWELLING [None]
  - RASH GENERALISED [None]
